FAERS Safety Report 4526518-9 (Version None)
Quarter: 2004Q4

REPORT INFORMATION
  Report Type: 
  Country: None (occurrence: None)
  Receive Date: 20041210
  Receipt Date: 20041202
  Transmission Date: 20050328
  Serious: Yes (Other)
  Sender: FDA-Public Use
  Company Number: 2004-12-0132

PATIENT
  Age: 49 Year
  Sex: Male

DRUGS (2)
  1. PEG-INTRON [Suspect]
     Indication: HEPATITIS C
     Dates: start: 20040909, end: 20041126
  2. REBETOL [Suspect]
     Indication: HEPATITIS C
     Dosage: ORAL
     Route: 048
     Dates: start: 20040909, end: 20041126

REACTIONS (4)
  - EPISTAXIS [None]
  - GASTROINTESTINAL DISORDER [None]
  - RECTAL HAEMORRHAGE [None]
  - RETINAL HAEMORRHAGE [None]
